FAERS Safety Report 12016672 (Version 1)
Quarter: 2016Q1

REPORT INFORMATION
  Report Type: Spontaneous
  Country: US (occurrence: US)
  Receive Date: 20160205
  Receipt Date: 20160205
  Transmission Date: 20160526
  Serious: No
  Sender: FDA-Public Use
  Company Number: US-AMGEN-USASP2015133750

PATIENT
  Age: 46 Year
  Sex: Male
  Weight: 58.96 kg

DRUGS (1)
  1. NEULASTA [Suspect]
     Active Substance: PEGFILGRASTIM
     Indication: PRODUCT USED FOR UNKNOWN INDICATION
     Dosage: 6 MG, X 1
     Route: 058
     Dates: start: 20151112, end: 20151212

REACTIONS (2)
  - Underdose [Unknown]
  - Device malfunction [Recovered/Resolved]

NARRATIVE: CASE EVENT DATE: 20151212
